FAERS Safety Report 25623635 (Version 1)
Quarter: 2025Q3

REPORT INFORMATION
  Report Type: Spontaneous
  Country: US (occurrence: None)
  Receive Date: 20250730
  Receipt Date: 20250730
  Transmission Date: 20251021
  Serious: No
  Sender: FDA-CTU
  Company Number: None

PATIENT

DRUGS (1)
  1. REPATHA [Suspect]
     Active Substance: EVOLOCUMAB

REACTIONS (7)
  - Throat tightness [None]
  - Tongue discomfort [None]
  - Abdominal pain upper [None]
  - Muscle spasms [None]
  - Fatigue [None]
  - Fatigue [None]
  - Malaise [None]
